FAERS Safety Report 5517681-1 (Version None)
Quarter: 2007Q4

REPORT INFORMATION
  Report Type: 
  Country: None (occurrence: None)
  Receive Date: 20071114
  Receipt Date: 20071019
  Transmission Date: 20080405
  Serious: No
  Sender: FDA-Public Use
  Company Number: US-BOEHRINGER INGELHEIM PHARMACEUTICALS, INC.-2007-BP-23136BP

PATIENT
  Age: 72 Year
  Sex: Male

DRUGS (4)
  1. SPIRIVA [Suspect]
     Indication: CHRONIC OBSTRUCTIVE PULMONARY DISEASE
     Route: 055
     Dates: start: 20060101
  2. VASOTEC [Concomitant]
  3. INSULIN [Concomitant]
  4. HYDROCHLOROTHIAZIDE [Concomitant]

REACTIONS (2)
  - BLOOD BLISTER [None]
  - RASH PUSTULAR [None]
